FAERS Safety Report 7119664-7 (Version None)
Quarter: 2010Q4

REPORT INFORMATION
  Report Type: 
  Country: None (occurrence: None)
  Receive Date: 20101123
  Receipt Date: 20101112
  Transmission Date: 20110411
  Serious: Yes (Death, Other)
  Sender: FDA-Public Use
  Company Number: US-CELGENEUS-163-21880-10112341

PATIENT
  Age: 75 Year
  Sex: Male

DRUGS (8)
  1. REVLIMID [Suspect]
     Indication: MULTIPLE MYELOMA
     Route: 048
     Dates: start: 20100413, end: 20100510
  2. PROZAC [Concomitant]
     Route: 065
  3. ATROVENT [Concomitant]
     Route: 065
  4. FILGRASTIM [Concomitant]
     Route: 065
  5. LISINOPRIL [Concomitant]
     Route: 065
  6. TRAZODONE [Concomitant]
     Route: 065
  7. PEPCID [Concomitant]
     Route: 065
  8. FERROUS SULFATE [Concomitant]
     Route: 048

REACTIONS (3)
  - DEATH [None]
  - NEUTROPHIL COUNT DECREASED [None]
  - PLATELET COUNT DECREASED [None]
